FAERS Safety Report 6612133-X (Version None)
Quarter: 2010Q1

REPORT INFORMATION
  Report Type: 
  Country: None (occurrence: None)
  Receive Date: 20100219
  Receipt Date: 20090625
  Transmission Date: 20100710
  Serious: Yes (Other)
  Sender: FDA-Public Use
  Company Number: 640489

PATIENT
  Age: 27 Year
  Sex: Female

DRUGS (6)
  1. KLONOPIN [Suspect]
     Indication: ANXIETY
     Dosage: 0.25 MG 3 PER 1 DAY ORAL
     Route: 048
     Dates: start: 20090401, end: 20090619
  2. KEFLEX [Concomitant]
  3. PHENAZOPYRIDINE (PHENAZOPYRIDINE HYDROCHLORIDE) [Concomitant]
  4. CYMBALTA [Concomitant]
  5. ELMIRON [Concomitant]
  6. ARMOUR THYROID (LEVOTHYROXINE/LIOTHYRONINE) [Concomitant]

REACTIONS (4)
  - AGGRESSION [None]
  - LOSS OF CONSCIOUSNESS [None]
  - MEMORY IMPAIRMENT [None]
  - SUICIDAL BEHAVIOUR [None]
